FAERS Safety Report 21760608 (Version 1)
Quarter: 2022Q4

REPORT INFORMATION
  Report Type: Spontaneous
  Country: ES (occurrence: ES)
  Receive Date: 20221221
  Receipt Date: 20221221
  Transmission Date: 20230113
  Serious: Yes (Other)
  Sender: FDA-Public Use
  Company Number: None

PATIENT
  Age: 66 Year
  Sex: Female

DRUGS (2)
  1. TALTZ [Suspect]
     Active Substance: IXEKIZUMAB
     Indication: Psoriatic arthropathy
     Dosage: 80 MG, MONTHLY (1/M), EVERY 28 DAYS
     Route: 058
     Dates: end: 20220802
  2. TALTZ [Suspect]
     Active Substance: IXEKIZUMAB
     Dosage: 160 MG, SINGLE, LOADING DOSE
     Route: 058
     Dates: start: 20220131

REACTIONS (1)
  - Urticaria [Recovered/Resolved]

NARRATIVE: CASE EVENT DATE: 20220215
